FAERS Safety Report 20731067 (Version 1)
Quarter: 2022Q2

REPORT INFORMATION
  Report Type: Spontaneous
  Country: US (occurrence: None)
  Receive Date: 20220420
  Receipt Date: 20220420
  Transmission Date: 20220721
  Serious: No
  Sender: FDA-Public Use
  Company Number: None

PATIENT
  Age: 52 Year
  Sex: Male

DRUGS (2)
  1. HUMIRA [Suspect]
     Active Substance: ADALIMUMAB
     Dosage: OTHER FREQUENCY : EVERY 2 WEEKS;?
     Route: 058
     Dates: start: 20000420
  2. HUMIRA [Concomitant]
     Active Substance: ADALIMUMAB
     Dates: start: 20200402

REACTIONS (1)
  - Blepharospasm [None]

NARRATIVE: CASE EVENT DATE: 20220420
